FAERS Safety Report 5006246-6 (Version None)
Quarter: 2006Q1

REPORT INFORMATION
  Report Type: 
  Country: None (occurrence: None)
  Receive Date: 20060327
  Receipt Date: 20060202
  Transmission Date: 20060701
  Serious: No
  Sender: FDA-Public Use
  Company Number: 221735

PATIENT
  Age: 62 Year
  Sex: Female
  Weight: 100.5 kg

DRUGS (5)
  1. AVASTIN [Suspect]
     Indication: OESOPHAGEAL CARCINOMA
     Dosage: 500 MG, Q2W, INTRAVENOUS
     Dates: end: 20051214
  2. DECADRON SRC [Concomitant]
  3. FLUOROURACIL [Concomitant]
  4. LEUCOVORIN CALCIUM [Concomitant]
  5. OXALIPLATIN (OXALIPLATIN) [Concomitant]

REACTIONS (1)
  - HYPERSENSITIVITY [None]
